FAERS Safety Report 24676969 (Version 2)
Quarter: 2025Q3

REPORT INFORMATION
  Report Type: Report from Study
  Country: JP (occurrence: JP)
  Receive Date: 20241128
  Receipt Date: 20250809
  Transmission Date: 20251021
  Serious: Yes (Death, Other)
  Sender: ALEXION PHARMACEUTICALS
  Company Number: JP-ASTRAZENECA-230027827_011820_P_1

PATIENT
  Age: 18 Year
  Sex: Female

DRUGS (5)
  1. KOSELUGO [Suspect]
     Active Substance: SELUMETINIB
     Indication: Neurofibromatosis
     Dates: start: 20230130, end: 20230428
  2. Oxinorm [Concomitant]
     Indication: Pain
     Dates: start: 20230130, end: 20230410
  3. Oxinorm [Concomitant]
     Dates: start: 20230203, end: 20230327
  4. Oxinorm [Concomitant]
     Dates: start: 20230327, end: 20230410
  5. SYMPROIC [Concomitant]
     Active Substance: NALDEMEDINE TOSYLATE
     Indication: Constipation
     Dosage: 0.2 MILLIGRAM, QD
     Dates: start: 20230130

REACTIONS (1)
  - Neurofibrosarcoma [Fatal]

NARRATIVE: CASE EVENT DATE: 20230428
